FAERS Safety Report 5977801-1 (Version None)
Quarter: 2008Q4

REPORT INFORMATION
  Report Type: 
  Country: None (occurrence: None)
  Receive Date: 20081201
  Receipt Date: 20081201
  Transmission Date: 20090506
  Serious: Yes (Hospitalization)
  Sender: FDA-Public Use
  Company Number: None

PATIENT
  Sex: Female

DRUGS (1)
  1. METOPROLOL SUCCINATE EXTENDED RELEASE [Suspect]
     Indication: BLOOD PRESSURE
     Dosage: 50 MGS 1QD PO
     Route: 048
     Dates: start: 20081117, end: 20081127

REACTIONS (2)
  - HALLUCINATION [None]
  - PRODUCT QUALITY ISSUE [None]
